FAERS Safety Report 24839158 (Version 1)
Quarter: 2025Q1

REPORT INFORMATION
  Report Type: Spontaneous
  Country: US (occurrence: US)
  Receive Date: 20250114
  Receipt Date: 20250114
  Transmission Date: 20250409
  Serious: No
  Sender: IBSA INSTITUT BIOCHIMIQUE
  Company Number: US-IBSA PHARMA INC.-2024IBS000150

PATIENT

DRUGS (3)
  1. TIROSINT-SOL [Suspect]
     Active Substance: LEVOTHYROXINE SODIUM
     Indication: Hypothyroidism
     Route: 065
     Dates: start: 202401
  2. TIROSINT-SOL [Suspect]
     Active Substance: LEVOTHYROXINE SODIUM
     Dosage: 62.5 MICROGRAM, QD
     Route: 048
     Dates: start: 2024
  3. ATORVASTATIN [Suspect]
     Active Substance: ATORVASTATIN
     Indication: Blood cholesterol
     Route: 065
     Dates: end: 202404

REACTIONS (10)
  - Swelling face [None]
  - Joint swelling [None]
  - Feeling abnormal [Unknown]
  - Peripheral swelling [Recovered/Resolved]
  - Osteoarthritis [None]
  - Adverse event [Unknown]
  - Paraesthesia [Recovered/Resolved]
  - Drug intolerance [Unknown]
  - Night sweats [Unknown]
  - Blood thyroid stimulating hormone decreased [Recovering/Resolving]

NARRATIVE: CASE EVENT DATE: 20240101
